FAERS Safety Report 21444837 (Version 1)
Quarter: 2022Q4

REPORT INFORMATION
  Report Type: Spontaneous
  Country: US (occurrence: US)
  Receive Date: 20221012
  Receipt Date: 20221012
  Transmission Date: 20230112
  Serious: No
  Sender: FDA-Public Use
  Company Number: US-ABBVIE-4138939

PATIENT
  Sex: Female

DRUGS (1)
  1. SYNTHROID [Suspect]
     Active Substance: LEVOTHYROXINE SODIUM
     Indication: Hypothyroidism
     Dosage: 88 MICROGRAM?DRUG START AROUND A YEAR AND A HALF AGO
     Route: 048
     Dates: start: 2021

REACTIONS (3)
  - Maternal exposure during pregnancy [Unknown]
  - Hypercholesterolaemia [Unknown]
  - Depression [Unknown]
